FAERS Safety Report 4533873-2 (Version None)
Quarter: 2004Q4

REPORT INFORMATION
  Report Type: 
  Country: None (occurrence: None)
  Receive Date: 20041214
  Receipt Date: 20040917
  Transmission Date: 20050328
  Serious: No
  Sender: FDA-Public Use
  Company Number: US_0409105902

PATIENT
  Age: 51 Year
  Sex: Male
  Weight: 96 kg

DRUGS (2)
  1. CIALIS [Suspect]
     Indication: ANAL CANCER
     Dosage: 20 MG
  2. PERCOCET [Concomitant]

REACTIONS (2)
  - BACK PAIN [None]
  - PROCTALGIA [None]
